FAERS Safety Report 8694592 (Version 4)
Quarter: 2012Q4

REPORT INFORMATION
  Report Type: 
  Country: US (occurrence: US)
  Receive Date: 20120731
  Receipt Date: 20120830
  Transmission Date: 20130627
  Serious: Yes (Other)
  Sender: FDA-Public Use
  Company Number: US-UCBSA-063481

PATIENT
  Age: 79 Year
  Sex: Female
  Weight: 47.6 kg

DRUGS (7)
  1. KEPPRA [Suspect]
     Indication: CONVULSION
     Dates: end: 20120722
  2. KEPPRA [Suspect]
     Indication: CONVULSION
     Dosage: DAILY DOSE: 1500 MG
     Dates: start: 20120722
  3. DILANTIN [Suspect]
     Indication: CONVULSION
     Dates: start: 1970, end: 20120722
  4. DILANTIN [Suspect]
     Indication: CONVULSION
     Dates: start: 20120723
  5. RANIBIZUMAB [Suspect]
     Indication: MACULAR DEGENERATION
     Dates: start: 2012
  6. AFLIBERCEPT [Suspect]
     Indication: MACULAR DEGENERATION
     Dates: start: 201207
  7. SYNTHROID [Concomitant]
     Indication: THYROIDECTOMY
     Dosage: DOSE :200 MCG

REACTIONS (4)
  - Macular degeneration [Unknown]
  - Convulsion [Recovered/Resolved]
  - Pain [Unknown]
  - Feeling abnormal [Recovered/Resolved]
